FAERS Safety Report 5755405-3 (Version None)
Quarter: 2008Q2

REPORT INFORMATION
  Report Type: 
  Country: None (occurrence: None)
  Receive Date: 20080529
  Receipt Date: 20080529
  Transmission Date: 20081010
  Serious: Yes (Disabling)
  Sender: FDA-Public Use
  Company Number: None

PATIENT
  Sex: Female
  Weight: 67.1 kg

DRUGS (1)
  1. TAXOL [Suspect]

REACTIONS (2)
  - CORONARY ARTERY THROMBOSIS [None]
  - POST PROCEDURAL COMPLICATION [None]
